FAERS Safety Report 7743235-2 (Version None)
Quarter: 2011Q3

REPORT INFORMATION
  Report Type: 
  Country: None (occurrence: None)
  Receive Date: 20110819
  Receipt Date: 20110503
  Transmission Date: 20111222
  Serious: No
  Sender: FDA-Public Use
  Company Number: 033393

PATIENT
  Age: 3 Year
  Sex: Female

DRUGS (2)
  1. LACOSAMIDE [Suspect]
     Indication: EPILEPSY
     Dosage: 50MG/KG SECOND AED LOAD
     Dates: end: 20110222
  2. FOSPHENYTOIN (FOSPHENYTOIN) [Concomitant]

REACTIONS (2)
  - DYSKINESIA [None]
  - IRRITABILITY [None]
